FAERS Safety Report 6984648-6 (Version None)
Quarter: 2010Q3

REPORT INFORMATION
  Report Type: 
  Country: None (occurrence: None)
  Receive Date: 20100914
  Receipt Date: 20100914
  Transmission Date: 20110219
  Serious: No
  Sender: FDA-Public Use
  Company Number: None

PATIENT
  Sex: Female
  Weight: 68.0396 kg

DRUGS (3)
  1. METOPROLOL SUCCINATE [Suspect]
  2. NORVASC [Suspect]
  3. LOTENSIN [Suspect]

REACTIONS (12)
  - ARTHRALGIA [None]
  - BLOOD PRESSURE FLUCTUATION [None]
  - BOWEL MOVEMENT IRREGULARITY [None]
  - COLITIS ULCERATIVE [None]
  - CONSTIPATION [None]
  - CYST [None]
  - HAEMORRHOIDAL HAEMORRHAGE [None]
  - JOINT SWELLING [None]
  - NEOPLASM [None]
  - PYREXIA [None]
  - THROMBOSIS [None]
  - TINNITUS [None]
